FAERS Safety Report 7443779-7 (Version None)
Quarter: 2011Q2

REPORT INFORMATION
  Report Type: 
  Country: None (occurrence: None)
  Receive Date: 20110428
  Receipt Date: 20110426
  Transmission Date: 20111010
  Serious: Yes (Death, Other)
  Sender: FDA-Public Use
  Company Number: US-AMGEN-QUU443549

PATIENT
  Age: 94 Year
  Sex: Male
  Weight: 65.578 kg

DRUGS (4)
  1. NPLATE [Suspect]
     Dosage: 65 A?G, QWK
     Route: 058
     Dates: start: 20100715, end: 20100724
  2. RITUXIMAB [Concomitant]
     Dosage: UNK UNK, UNK
     Dates: start: 20100618
  3. NPLATE [Suspect]
     Indication: THROMBOCYTOPENIA
     Dosage: .26 A?G/KG, UNK
     Route: 058
     Dates: start: 20100715, end: 20100722
  4. NPLATE [Suspect]
     Dates: end: 20100724

REACTIONS (4)
  - DRUG INEFFECTIVE [None]
  - PLATELET COUNT DECREASED [None]
  - RENAL CELL CARCINOMA [None]
  - MYELODYSPLASTIC SYNDROME [None]
